FAERS Safety Report 7669022-1 (Version None)
Quarter: 2011Q3

REPORT INFORMATION
  Report Type: 
  Country: None (occurrence: None)
  Receive Date: 20110808
  Receipt Date: 20110803
  Transmission Date: 20111222
  Serious: Yes (Other)
  Sender: FDA-Public Use
  Company Number: JP-PFIZER INC-2011177891

PATIENT
  Age: 55 Year
  Sex: Male

DRUGS (3)
  1. SOLU-MEDROL [Suspect]
     Route: 042
  2. THYMOGLOBULIN [Suspect]
  3. CYCLOSPORINE [Suspect]

REACTIONS (1)
  - HEPATITIS B [None]
